FAERS Safety Report 10466900 (Version 1)
Quarter: 2014Q2

REPORT INFORMATION
  Report Type: Spontaneous
  Country: US (occurrence: None)
  Receive Date: 20140613
  Receipt Date: 20140613
  Transmission Date: 20141212
  Serious: No
  Sender: FDA-Public Use
  Company Number: US-2014-102950

PATIENT
  Age: 5 Year
  Sex: Male

DRUGS (4)
  1. VIMIZIM [Suspect]
     Indication: MUCOPOLYSACCHARIDOSIS IV
     Route: 041
  2. BENADRYL /00000402/ (DIPHENHYDRAMINE HYDROCHLORIDE) [Concomitant]
  3. TYLENLOL /00020001/ (PARACETAMOL) [Concomitant]
  4. ZOFRAN /00955301/ (ONDANSETRON) [Concomitant]

REACTIONS (1)
  - Pyrexia [None]
